FAERS Safety Report 15793875 (Version 3)
Quarter: 2019Q2

REPORT INFORMATION
  Report Type: Spontaneous
  Country: FR (occurrence: FR)
  Receive Date: 20190107
  Receipt Date: 20190417
  Transmission Date: 20190711
  Serious: Yes (Hospitalization)
  Sender: FDA-Public Use
  Company Number: FR-AMREGENT-20182454

PATIENT
  Age: 7 Year
  Sex: Male
  Weight: 19.5 kg

DRUGS (1)
  1. VENOFER [Suspect]
     Active Substance: IRON SUCROSE
     Dosage: 300 MG, 1 D
     Route: 042
     Dates: start: 20181115, end: 20181115

REACTIONS (3)
  - Overdose [Recovered/Resolved]
  - Mixed liver injury [Recovered/Resolved]
  - Blood iron increased [Recovered/Resolved]

NARRATIVE: CASE EVENT DATE: 20181115
